FAERS Safety Report 9002142 (Version 1)
Quarter: 2013Q1

REPORT INFORMATION
  Report Type: Spontaneous
  Country: US (occurrence: None)
  Receive Date: 20130102
  Receipt Date: 20130102
  Transmission Date: 20140127
  Serious: Yes (Other)
  Sender: FDA-Public Use
  Company Number: None

PATIENT
  Sex: Male

DRUGS (1)
  1. ZELBORAF [Suspect]
     Dosage: 960MG BID  PO
     Route: 048
     Dates: start: 20121130

REACTIONS (5)
  - Oedema peripheral [None]
  - Joint swelling [None]
  - Nausea [None]
  - Pyrexia [None]
  - Abasia [None]
